FAERS Safety Report 8603513-1 (Version None)
Quarter: 2012Q3

REPORT INFORMATION
  Report Type: 
  Country: None (occurrence: None)
  Receive Date: 20120817
  Receipt Date: 20120815
  Transmission Date: 20120928
  Serious: Yes (Hospitalization, Other)
  Sender: FDA-Public Use
  Company Number: CA-ROCHE-1082294

PATIENT
  Sex: Female
  Weight: 34.05 kg

DRUGS (16)
  1. CALCIUM [Concomitant]
  2. MYCOSTATIN [Concomitant]
     Indication: FUNGAL INFECTION
     Dates: start: 20120810
  3. VITAMIN D [Concomitant]
  4. EZETIMIBE [Concomitant]
  5. CLARITHROMYCIN [Concomitant]
  6. CEPHALEXIN [Concomitant]
  7. FOSAMAX [Concomitant]
  8. LEVOFLOXACIN [Concomitant]
  9. FOLIC ACID [Concomitant]
  10. PREDNISONE TAB [Concomitant]
  11. METHOTREXATE [Concomitant]
  12. ADVIL [Concomitant]
  13. ACTEMRA [Suspect]
     Indication: RHEUMATOID ARTHRITIS
     Route: 042
     Dates: start: 20120420, end: 20120420
  14. ETHAMBUTOL HYDROCHLORIDE [Concomitant]
     Dosage: BRAND NAME: AMBUTOL
  15. ASPIRIN [Concomitant]
  16. ARMODAFINIL [Concomitant]

REACTIONS (7)
  - BURKHOLDERIA CEPACIA COMPLEX INFECTION [None]
  - RALES [None]
  - PALLOR [None]
  - DYSPHAGIA [None]
  - RESPIRATORY DISTRESS [None]
  - HEART RATE INCREASED [None]
  - RESPIRATORY RATE INCREASED [None]
